FAERS Safety Report 23511781 (Version 1)
Quarter: 2024Q1

REPORT INFORMATION
  Report Type: Spontaneous
  Country: CN (occurrence: None)
  Receive Date: 20240212
  Receipt Date: 20240212
  Transmission Date: 20240410
  Serious: Yes (Hospitalization)
  Sender: FDA-Public Use
  Company Number: CN-ROCHE-3502845

PATIENT
  Age: 67 Year
  Sex: Female

DRUGS (7)
  1. HERCEPTIN [Suspect]
     Active Substance: TRASTUZUMAB
     Indication: Breast cancer
     Route: 041
     Dates: start: 20231204
  2. HERCEPTIN [Suspect]
     Active Substance: TRASTUZUMAB
     Route: 041
     Dates: start: 20240104, end: 20240104
  3. HERCEPTIN [Suspect]
     Active Substance: TRASTUZUMAB
     Indication: Breast cancer
     Route: 065
     Dates: start: 20230316
  4. HERCEPTIN [Suspect]
     Active Substance: TRASTUZUMAB
     Dosage: ON 27/SEP/2023, 18/OCT/2023, 08/NOV/2023, RECEIVED SUBSEQUENT DOSES.
     Route: 065
     Dates: start: 20230816
  5. PACLITAXEL [Concomitant]
     Active Substance: PACLITAXEL
     Dates: start: 20230316
  6. CARBOPLATIN [Concomitant]
     Active Substance: CARBOPLATIN
     Dates: start: 20230316
  7. EXEMESTANE [Concomitant]
     Active Substance: EXEMESTANE
     Route: 048
     Dates: start: 20230816

REACTIONS (1)
  - Liver injury [Recovering/Resolving]

NARRATIVE: CASE EVENT DATE: 20240110
